FAERS Safety Report 9264066 (Version 1)
Quarter: 2013Q2

REPORT INFORMATION
  Report Type: Spontaneous
  Country: AU (occurrence: AU)
  Receive Date: 20130430
  Receipt Date: 20130430
  Transmission Date: 20140414
  Serious: Yes (Other)
  Sender: FDA-Public Use
  Company Number: AU-ELI_LILLY_AND_COMPANY-AU201304007007

PATIENT
  Age: 30 Year
  Sex: Male

DRUGS (4)
  1. CYMBALTA [Suspect]
     Indication: PANIC ATTACK
     Dosage: 120 MG, UNK
     Route: 048
  2. CYMBALTA [Suspect]
     Dosage: 60 MG, UNK
  3. CYMBALTA [Suspect]
     Dosage: 30 MG, UNK
     Dates: start: 201208
  4. CYMBALTA [Suspect]
     Dosage: 30 MG, OTHER

REACTIONS (4)
  - Suicidal ideation [Unknown]
  - Drug withdrawal syndrome [Unknown]
  - Feeling abnormal [Unknown]
  - Memory impairment [Unknown]
